FAERS Safety Report 24551572 (Version 2)
Quarter: 2024Q4

REPORT INFORMATION
  Report Type: Spontaneous
  Country: FR (occurrence: FR)
  Receive Date: 20241026
  Receipt Date: 20241125
  Transmission Date: 20250115
  Serious: Yes (Life-Threatening, Other)
  Sender: AUROBINDO
  Company Number: FR-GSK-FR2024GSK120263

PATIENT
  Age: 72 Year
  Sex: Female

DRUGS (3)
  1. CARBOPLATIN [Suspect]
     Active Substance: CARBOPLATIN
     Indication: Endometrial cancer
     Dosage: UNK
     Route: 065
  2. PACLITAXEL [Suspect]
     Active Substance: PACLITAXEL
     Indication: Endometrial cancer
     Dosage: 175 MILLIGRAM/SQ. METER (175 MG/M2)
     Route: 065
  3. DOSTARLIMAB [Suspect]
     Active Substance: DOSTARLIMAB
     Indication: Endometrial cancer metastatic
     Dosage: 500 MG
     Route: 065

REACTIONS (32)
  - Haemophagocytic lymphohistiocytosis [Unknown]
  - Thrombocytopenia [Recovered/Resolved]
  - Toxicity to various agents [Unknown]
  - Bicytopenia [Unknown]
  - Cytopenia [Recovering/Resolving]
  - Deep vein thrombosis [Unknown]
  - Endocarditis [Unknown]
  - Pyelonephritis [Unknown]
  - Paraneoplastic rash [Unknown]
  - Pulmonary embolism [Unknown]
  - Pneumothorax [Unknown]
  - Respiratory distress [Unknown]
  - Anaemia [Unknown]
  - Atelectasis [Unknown]
  - Cough [Unknown]
  - Cell death [Unknown]
  - Condition aggravated [Unknown]
  - Escherichia urinary tract infection [Unknown]
  - Fatigue [Recovering/Resolving]
  - Inflammation [Not Recovered/Not Resolved]
  - Iatrogenic infection [Unknown]
  - Lymphopenia [Unknown]
  - Leukocytosis [Unknown]
  - Pyrexia [Unknown]
  - Pleural effusion [Unknown]
  - Rash [Recovered/Resolved]
  - Rash maculo-papular [Recovered/Resolved]
  - Respiratory alkalosis [Unknown]
  - Respiratory syncytial virus infection [Unknown]
  - Rash morbilliform [Recovered/Resolved]
  - Splenomegaly [Unknown]
  - Viral infection [Unknown]
